FAERS Safety Report 9227763 (Version 1)
Quarter: 2013Q1

REPORT INFORMATION
  Report Type: Spontaneous
  Country: US (occurrence: None)
  Receive Date: 20121031
  Receipt Date: 20121031
  Transmission Date: 20140127
  Serious: No
  Sender: FDA-Public Use
  Company Number: PHEH2012US015578

PATIENT
  Age: 49 Year
  Sex: Female
  Weight: 72.6 kg

DRUGS (1)
  1. GILENYA (FTY)CAPSULE, 0.5MG [Suspect]
     Indication: MULTIPLE SCLEROSIS
     Route: 048

REACTIONS (3)
  - Decreased immune responsiveness [None]
  - Nasopharyngitis [None]
  - Cough [None]
